FAERS Safety Report 6902364-3 (Version None)
Quarter: 2010Q3

REPORT INFORMATION
  Report Type: 
  Country: None (occurrence: None)
  Receive Date: 20100803
  Receipt Date: 20080516
  Transmission Date: 20110219
  Serious: No
  Sender: FDA-Public Use
  Company Number: US-PFIZER INC-2008042612

PATIENT
  Sex: Male
  Weight: 72.6 kg

DRUGS (3)
  1. LYRICA [Suspect]
     Indication: MIGRAINE
     Dates: start: 20051001
  2. LYRICA [Suspect]
     Indication: TESTICULAR PAIN
  3. HYDROCODONE BITARTRATE [Concomitant]

REACTIONS (6)
  - ANXIETY [None]
  - INCORRECT DOSE ADMINISTERED [None]
  - INSOMNIA [None]
  - MIGRAINE [None]
  - NERVOUSNESS [None]
  - TESTICULAR PAIN [None]
